FAERS Safety Report 7615825-9 (Version None)
Quarter: 2011Q3

REPORT INFORMATION
  Report Type: 
  Country: None (occurrence: None)
  Receive Date: 20110718
  Receipt Date: 20110718
  Transmission Date: 20111222
  Serious: No
  Sender: FDA-Public Use
  Company Number: None

PATIENT
  Sex: Female

DRUGS (12)
  1. PLAVIX [Concomitant]
  2. LOVASTATIN [Concomitant]
  3. RANITIDINE [Concomitant]
  4. LOSARTAN POTASSIUM [Concomitant]
  5. REVLIMID [Suspect]
     Indication: MYELODYSPLASTIC SYNDROME
     Dosage: 10MG DAILY ORALLY
     Route: 048
     Dates: start: 20110621
  6. HYDRALAZINE HCL [Concomitant]
  7. PREDNISONE [Concomitant]
  8. METOPROLOL TARTRATE [Concomitant]
  9. HYDROXYCHLOROQUINE SULFATE [Concomitant]
  10. NORPACE [Concomitant]
  11. LEVOTHROID [Concomitant]
  12. DICYCLOMINE [Concomitant]

REACTIONS (1)
  - DIZZINESS [None]
